FAERS Safety Report 6440783-2 (Version None)
Quarter: 2009Q4

REPORT INFORMATION
  Report Type: 
  Country: None (occurrence: None)
  Receive Date: 20091116
  Receipt Date: 20091109
  Transmission Date: 20100525
  Serious: Yes (Other)
  Sender: FDA-Public Use
  Company Number: US-JNJFOC-20091103124

PATIENT
  Age: 24 Year
  Sex: Female
  Weight: 54.43 kg

DRUGS (3)
  1. TYLENOL COLD MULTI-SYMPTOM DAYTIME RAPID RELEASE GELS [Suspect]
     Indication: MULTIPLE ALLERGIES
     Route: 048
  2. TYLENOL COLD MULTI-SYMPTOM NIGHTTIME RAPID RELEASE GELS [Suspect]
     Indication: MULTIPLE ALLERGIES
     Route: 048
  3. SUDAFED 12 HOUR [Concomitant]
     Indication: MULTIPLE ALLERGIES

REACTIONS (3)
  - ABDOMINAL PAIN UPPER [None]
  - DYSPNOEA [None]
  - SOMNOLENCE [None]
